FAERS Safety Report 19280099 (Version 1)
Quarter: 2021Q2

REPORT INFORMATION
  Report Type: Spontaneous
  Country: US (occurrence: US)
  Receive Date: 20210520
  Receipt Date: 20210520
  Transmission Date: 20210717
  Serious: No
  Sender: FDA-Public Use
  Company Number: US-ASTRAZENECA-2021A424275

PATIENT
  Sex: Male
  Weight: 90.7 kg

DRUGS (1)
  1. BRILINTA [Suspect]
     Active Substance: TICAGRELOR
     Indication: COMPLICATION ASSOCIATED WITH DEVICE
     Route: 048
     Dates: start: 202103

REACTIONS (1)
  - Fatigue [Not Recovered/Not Resolved]
